FAERS Safety Report 8947832 (Version 1)
Quarter: 2012Q4

REPORT INFORMATION
  Report Type: Spontaneous
  Country: DK (occurrence: None)
  Receive Date: 20121127
  Receipt Date: 20121127
  Transmission Date: 20130627
  Serious: Yes (Hospitalization)
  Sender: FDA-Public Use
  Company Number: 2012MA013445

PATIENT
  Age: 29 Year
  Sex: Female

DRUGS (2)
  1. ALPRAZOLAM [Suspect]
     Route: 048
     Dates: start: 20120731, end: 20120731
  2. ALCOVER (OXBATE SODIUM) [Concomitant]
     Route: 048
     Dates: start: 20120731, end: 20120731

REACTIONS (6)
  - Coma [None]
  - Bradycardia [None]
  - Intentional drug misuse [None]
  - Toxicity to various agents [None]
  - Overdose [None]
  - Alcohol poisoning [None]
